FAERS Safety Report 4289326-2 (Version None)
Quarter: 2004Q1

REPORT INFORMATION
  Report Type: 
  Country: None (occurrence: None)
  Receive Date: 20040206
  Receipt Date: 20040127
  Transmission Date: 20041129
  Serious: Yes (Other)
  Sender: FDA-Public Use
  Company Number: 2004196917JP

PATIENT
  Sex: Female

DRUGS (3)
  1. IDAMYCIN(IDARUBICIN HYDROCHLORIDE) POWDER, STERILE [Suspect]
     Indication: ACUTE PROMYELOCYTIC LEUKAEMIA
     Dosage: 20 MG, QD, IV
     Route: 042
     Dates: start: 20040107, end: 20040113
  2. VESANOID [Suspect]
     Indication: ACUTE PROMYELOCYTIC LEUKAEMIA
     Dosage: 70 MG, QD, ORAL
     Route: 048
     Dates: start: 20040106
  3. DEXAMETHASONE [Suspect]
     Indication: ACUTE PROMYELOCYTIC LEUKAEMIA
     Dosage: 20 MG, QD, ORAL
     Route: 048
     Dates: start: 20040106, end: 20040113

REACTIONS (9)
  - APGAR SCORE LOW [None]
  - CAESAREAN SECTION [None]
  - CEREBRAL HAEMORRHAGE NEONATAL [None]
  - CREATINE PHOSPHOKINASE DECREASED [None]
  - DISSEMINATED INTRAVASCULAR COAGULATION [None]
  - DRUG EXPOSURE DURING PREGNANCY [None]
  - FOETAL DISTRESS SYNDROME [None]
  - PLATELET COUNT DECREASED [None]
  - WHITE BLOOD CELL COUNT INCREASED [None]
